FAERS Safety Report 5183340-0 (Version None)
Quarter: 2006Q4

REPORT INFORMATION
  Report Type: 
  Country: None (occurrence: None)
  Receive Date: 20061220
  Receipt Date: 20060109
  Transmission Date: 20070319
  Serious: No
  Sender: FDA-Public Use
  Company Number: US-GLAXOSMITHKLINE-A0588309A

PATIENT
  Age: 30 Year
  Sex: Female

DRUGS (2)
  1. NICODERM CQ [Suspect]
     Indication: SMOKING CESSATION THERAPY
     Dates: start: 20060103, end: 20060104
  2. AMERICAN FARE NTS, 21MG STEP 1 [Suspect]
     Indication: SMOKING CESSATION THERAPY
     Dates: start: 20060105, end: 20060108

REACTIONS (2)
  - APPLICATION SITE PAIN [None]
  - DRUG EXPOSURE DURING PREGNANCY [None]
